FAERS Safety Report 12369492 (Version 1)
Quarter: 2016Q2

REPORT INFORMATION
  Report Type: Spontaneous
  Country: US (occurrence: None)
  Receive Date: 20160513
  Receipt Date: 20160513
  Transmission Date: 20160815
  Serious: No
  Sender: FDA-Public Use
  Company Number: None

PATIENT
  Age: 95 Year
  Sex: Male
  Weight: 95.26 kg

DRUGS (2)
  1. TYLENOL [Concomitant]
     Active Substance: ACETAMINOPHEN
  2. SALONPAS PAIN RELIEVING JET [Suspect]
     Active Substance: MENTHOL\METHYL SALICYLATE
     Indication: PAIN IN EXTREMITY
     Route: 061
     Dates: start: 20160510, end: 20160510

REACTIONS (2)
  - Application site burn [None]
  - Application site vesicles [None]

NARRATIVE: CASE EVENT DATE: 20160510
